FAERS Safety Report 22384150 (Version 1)
Quarter: 2023Q2

REPORT INFORMATION
  Report Type: Spontaneous
  Country: FR (occurrence: FR)
  Receive Date: 20230530
  Receipt Date: 20230530
  Transmission Date: 20230722
  Serious: Yes (Hospitalization, Other)
  Sender: FDA-Public Use
  Company Number: None

PATIENT
  Age: 67 Year
  Sex: Female

DRUGS (1)
  1. ABILIFY [Suspect]
     Active Substance: ARIPIPRAZOLE
     Indication: Bipolar I disorder
     Dosage: 10 MG
     Route: 048
     Dates: start: 20220602

REACTIONS (1)
  - Deep vein thrombosis [Not Recovered/Not Resolved]

NARRATIVE: CASE EVENT DATE: 20230413
